FAERS Safety Report 5143881-9 (Version None)
Quarter: 2006Q4

REPORT INFORMATION
  Report Type: 
  Country: None (occurrence: None)
  Receive Date: 20061106
  Receipt Date: 20060825
  Transmission Date: 20070319
  Serious: Yes (Hospitalization, Other)
  Sender: FDA-Public Use
  Company Number: US-AVENTIS-200617276US

PATIENT
  Sex: Female
  Weight: 55 kg

DRUGS (5)
  1. TAXOTERE [Suspect]
     Indication: BREAST CANCER METASTATIC
     Dosage: DOSE: 4 CYCLES
     Dates: start: 20021001, end: 20021201
  2. ADRIAMYCIN                         /00330901/ [Suspect]
     Indication: BREAST CANCER METASTATIC
     Dosage: DOSE: UNK
     Dates: start: 20020101, end: 20021201
  3. PERIACTIN [Concomitant]
     Indication: URTICARIA THERMAL
     Dosage: DOSE: UNK
  4. CYCLOPHOSPHAMIDE [Concomitant]
     Indication: BREAST CANCER METASTATIC
     Dosage: DOSE: UNK
     Dates: start: 20020101, end: 20021201
  5. RADIATION THERAPY [Concomitant]
     Indication: BREAST CANCER METASTATIC
     Dosage: DOSE: UNK

REACTIONS (22)
  - ABDOMINAL PAIN UPPER [None]
  - AUTOIMMUNE THYROIDITIS [None]
  - CARDIOMYOPATHY [None]
  - CHEST PAIN [None]
  - CONDUCTION DISORDER [None]
  - DIASTOLIC DYSFUNCTION [None]
  - DYSPHONIA [None]
  - DYSPNOEA [None]
  - DYSPNOEA EXERTIONAL [None]
  - ECHOCARDIOGRAM ABNORMAL [None]
  - FATIGUE [None]
  - GAIT DISTURBANCE [None]
  - MITRAL VALVE INCOMPETENCE [None]
  - NERVE CONDUCTION STUDIES ABNORMAL [None]
  - NERVOUS SYSTEM DISORDER [None]
  - NEUROPATHY PERIPHERAL [None]
  - PANCREATITIS ACUTE [None]
  - PULMONARY FIBROSIS [None]
  - SINUS TACHYCARDIA [None]
  - TACHYCARDIA [None]
  - TRICUSPID VALVE INCOMPETENCE [None]
  - VENTRICULAR HYPOKINESIA [None]
